FAERS Safety Report 8150448-7 (Version None)
Quarter: 2012Q1

REPORT INFORMATION
  Report Type: 
  Country: None (occurrence: None)
  Receive Date: 20120220
  Receipt Date: 20120207
  Transmission Date: 20120608
  Serious: Yes (Hospitalization, Other)
  Sender: FDA-Public Use
  Company Number: US-ELI_LILLY_AND_COMPANY-US201202002563

PATIENT
  Sex: Female

DRUGS (6)
  1. XANAX [Concomitant]
  2. FORTEO [Suspect]
     Indication: OSTEOPOROSIS
     Dosage: 20 UG, QD
     Dates: end: 20111201
  3. ADDERALL 5 [Concomitant]
  4. MORPHINE [Concomitant]
  5. ROXICODONE [Concomitant]
  6. LACTULOSE [Concomitant]

REACTIONS (5)
  - COMA [None]
  - GENERAL PHYSICAL HEALTH DETERIORATION [None]
  - APHASIA [None]
  - HEPATIC FAILURE [None]
  - AMMONIA INCREASED [None]
